FAERS Safety Report 14233643 (Version 4)
Quarter: 2018Q2

REPORT INFORMATION
  Report Type: Report from Study
  Country: US (occurrence: US)
  Receive Date: 20171129
  Receipt Date: 20180611
  Transmission Date: 20180711
  Serious: Yes (Hospitalization)
  Sender: FDA-Public Use
  Company Number: US-BAYER-2017-221104

PATIENT
  Age: 70 Year
  Sex: Female

DRUGS (3)
  1. STIVARGA [Suspect]
     Active Substance: REGORAFENIB
     Indication: GASTROINTESTINAL STROMAL CANCER
     Dosage: DAILY DOSE 160 MG (3 WEEKS ON, ONE WEEK OFF)
     Route: 048
     Dates: start: 20171109, end: 20171114
  2. STIVARGA [Suspect]
     Active Substance: REGORAFENIB
     Indication: GASTROINTESTINAL STROMAL CANCER
     Dosage: 80 MG DAILY (14 DAYS ON AND 7 DAYS OFF)
     Route: 048
  3. STIVARGA [Suspect]
     Active Substance: REGORAFENIB
     Indication: GASTROINTESTINAL STROMAL CANCER
     Dosage: DAILY DOSE 80 MG (3 WEEKS ON, ONE WEEK OFF)
     Route: 048
     Dates: start: 20171130, end: 20171210

REACTIONS (10)
  - Aphonia [Recovering/Resolving]
  - Dysphonia [None]
  - Oropharyngeal pain [None]
  - Blood pressure increased [Recovered/Resolved]
  - Chest pain [Recovered/Resolved]
  - Chest pain [None]
  - Abdominal discomfort [Recovering/Resolving]
  - Dysphonia [None]
  - Off label use [None]
  - Dyspepsia [Recovered/Resolved]

NARRATIVE: CASE EVENT DATE: 201711
